FAERS Safety Report 10173637 (Version 1)
Quarter: 2014Q2

REPORT INFORMATION
  Report Type: Spontaneous
  Country: US (occurrence: None)
  Receive Date: 20140416
  Receipt Date: 20140416
  Transmission Date: 20141212
  Serious: Yes (Hospitalization)
  Sender: FDA-Public Use
  Company Number: 163-POMAL-14013888

PATIENT
  Age: 69 Year
  Sex: Male

DRUGS (4)
  1. POMALYST (POMALIDOMIDE) (CAPSULES) [Suspect]
     Indication: PLASMA CELL MYELOMA
     Dosage: 21 IN 21 D
     Dates: start: 20130919
  2. METHADONE HCL (METHADONE HYDROCHLORIDE) [Concomitant]
  3. SENNA (SENNA) [Concomitant]
  4. VICODIN (VICODIN) [Concomitant]

REACTIONS (1)
  - Full blood count decreased [None]
